FAERS Safety Report 11880842 (Version 3)
Quarter: 2016Q1

REPORT INFORMATION
  Report Type: Report from Study
  Country: NL (occurrence: NL)
  Receive Date: 20151230
  Receipt Date: 20160208
  Transmission Date: 20160526
  Serious: Yes (Hospitalization)
  Sender: FDA-Public Use
  Company Number: NL-ABBVIE-15P-114-1528748-00

PATIENT
  Age: 38 Year
  Sex: Female

DRUGS (1)
  1. DUODOPA [Suspect]
     Active Substance: CARBIDOPA\LEVODOPA
     Indication: PARKINSON^S DISEASE
     Dosage: 20/50 MG/ML; INTESTINAL ROUTE MD:10.0, CD: 2.6, ED: 3.0, NO NIGHT DOSE
     Route: 050
     Dates: start: 20151214

REACTIONS (3)
  - Localised intraabdominal fluid collection [Recovered/Resolved]
  - Peritonitis [Recovered/Resolved]
  - Stoma site pain [Recovering/Resolving]

NARRATIVE: CASE EVENT DATE: 20151222
